FAERS Safety Report 6504391-7 (Version None)
Quarter: 2009Q4

REPORT INFORMATION
  Report Type: 
  Country: None (occurrence: None)
  Receive Date: 20091217
  Receipt Date: 20091207
  Transmission Date: 20100525
  Serious: Yes (Hospitalization, Other)
  Sender: FDA-Public Use
  Company Number: JP-ABBOTT-00I-087-0090870-00

PATIENT
  Sex: Female

DRUGS (3)
  1. KLARICID [Suspect]
     Indication: PYREXIA
     Dosage: NOT REPORTED
     Route: 048
     Dates: start: 20000318, end: 20000321
  2. MEIACT GRANULES [Suspect]
     Indication: PNEUMONIA
     Dosage: NOT REPORTED
     Route: 048
     Dates: start: 20000316, end: 20000317
  3. CEFMETAZON [Suspect]
     Indication: PYREXIA
     Dosage: NOT REPORTED
     Route: 042
     Dates: start: 20000317, end: 20000321

REACTIONS (5)
  - ALANINE AMINOTRANSFERASE INCREASED [None]
  - ASPARTATE AMINOTRANSFERASE INCREASED [None]
  - BLOOD LACTATE DEHYDROGENASE INCREASED [None]
  - RENAL FAILURE ACUTE [None]
  - RHABDOMYOLYSIS [None]
